FAERS Safety Report 8488627-1 (Version None)
Quarter: 2012Q3

REPORT INFORMATION
  Report Type: 
  Country: None (occurrence: None)
  Receive Date: 20120705
  Receipt Date: 20120627
  Transmission Date: 20120928
  Serious: Yes (Other)
  Sender: FDA-Public Use
  Company Number: US-EISAI INC-E3810-05613-SOL-US

PATIENT
  Sex: Female

DRUGS (2)
  1. ACIPHEX [Suspect]
     Route: 048
  2. TOPAMAX [Concomitant]

REACTIONS (2)
  - HAEMORRHAGE [None]
  - DRY MOUTH [None]
